FAERS Safety Report 8544572-4 (Version None)
Quarter: 2012Q3

REPORT INFORMATION
  Report Type: 
  Country: None (occurrence: None)
  Receive Date: 20120727
  Receipt Date: 20120723
  Transmission Date: 20120928
  Serious: Yes (Death, Life-Threatening, Hospitalization)
  Sender: FDA-Public Use
  Company Number: FR-ASTRAZENECA-2012SE51827

PATIENT
  Age: 32210 Day
  Sex: Female

DRUGS (6)
  1. AMIODARONE HCL [Suspect]
     Indication: ATRIAL FIBRILLATION
     Route: 048
     Dates: end: 20120205
  2. ASPIRIN [Suspect]
     Indication: ATRIAL FIBRILLATION
     Route: 048
     Dates: end: 20120205
  3. NITROGLYCERIN [Suspect]
     Indication: ANGINA PECTORIS
     Route: 062
     Dates: end: 20120205
  4. SYMBICORT [Suspect]
     Indication: CHRONIC OBSTRUCTIVE PULMONARY DISEASE
     Dosage: 2 DF TWICE A DAY
     Route: 055
     Dates: end: 20120205
  5. SINGULAIR [Suspect]
     Indication: CHRONIC OBSTRUCTIVE PULMONARY DISEASE
     Route: 048
     Dates: end: 20120205
  6. ATORVASTATIN [Suspect]
     Indication: THROMBOSIS PROPHYLAXIS
     Route: 048
     Dates: end: 20120205

REACTIONS (7)
  - CEREBRAL HAEMORRHAGE [None]
  - CEREBELLAR HAEMORRHAGE [None]
  - HYPERTENSIVE CRISIS [None]
  - SUBARACHNOID HAEMORRHAGE [None]
  - ACUTE PULMONARY OEDEMA [None]
  - RENAL FAILURE [None]
  - BRADYCARDIA [None]
